FAERS Safety Report 8208919-0 (Version None)
Quarter: 2012Q1

REPORT INFORMATION
  Report Type: 
  Country: None (occurrence: None)
  Receive Date: 20120314
  Receipt Date: 20120228
  Transmission Date: 20120608
  Serious: Yes (Other)
  Sender: FDA-Public Use
  Company Number: SK-WATSON-2012-02492

PATIENT
  Age: 55 Year
  Sex: Female

DRUGS (1)
  1. CITALOPRAM HYDROBROMIDE [Suspect]
     Indication: DEPRESSION
     Dosage: UNK

REACTIONS (4)
  - HYPOAESTHESIA ORAL [None]
  - OEDEMA PERIPHERAL [None]
  - FATIGUE [None]
  - CYSTOID MACULAR OEDEMA [None]
